FAERS Safety Report 6328630-0 (Version None)
Quarter: 2009Q3

REPORT INFORMATION
  Report Type: 
  Country: None (occurrence: None)
  Receive Date: 20090824
  Receipt Date: 20090824
  Transmission Date: 20100115
  Serious: No
  Sender: FDA-Public Use
  Company Number: None

PATIENT
  Age: 83 Year
  Sex: Female
  Weight: 81.6475 kg

DRUGS (1)
  1. COREG [Suspect]
     Dosage: 80MG ONCE A DAY
     Dates: start: 20090403

REACTIONS (4)
  - ASTHENIA [None]
  - HYPOAESTHESIA [None]
  - JOINT SWELLING [None]
  - VISION BLURRED [None]
